FAERS Safety Report 5115029-8 (Version None)
Quarter: 2006Q3

REPORT INFORMATION
  Report Type: 
  Country: None (occurrence: None)
  Receive Date: 20060921
  Receipt Date: 20060913
  Transmission Date: 20061208
  Serious: Yes (Other)
  Sender: FDA-Public Use
  Company Number: 2006110410

PATIENT
  Sex: Female

DRUGS (2)
  1. SUDAFED PE (PHENYLEPHRINE) [Suspect]
     Dosage: 2 TABLETS, ORAL
     Route: 048
  2. LAMOTRIGINE [Concomitant]

REACTIONS (2)
  - CONVULSION [None]
  - FEELING ABNORMAL [None]
